FAERS Safety Report 9295743 (Version 1)
Quarter: 2013Q1

REPORT INFORMATION
  Report Type: Spontaneous
  Country: US (occurrence: None)
  Receive Date: 20130107
  Receipt Date: 20130107
  Transmission Date: 20140127
  Serious: Yes (Other)
  Sender: FDA-Public Use
  Company Number: PHHY2012US102535

PATIENT
  Age: 67 Year
  Sex: Male
  Weight: 83.9 kg

DRUGS (17)
  1. GILENYA [Suspect]
     Indication: MULTIPLE SCLEROSIS
     Route: 048
     Dates: end: 20110927
  2. TEGRETOL (CARBAMAZEPINE) UNKNOWN [Concomitant]
  3. ZANAFLEX (TIZANIDINE HYDROCHLORIDE) [Concomitant]
  4. HYDROCHLOROTHIAZIDE (HYDROCHLOROTHIAZIDE) [Concomitant]
  5. VIAGRA (SILDENAFIL CITRATE) [Concomitant]
  6. AMLODIPINE (AMLODIPINE) [Concomitant]
  7. CENTRUM SILVER (ASCORBIC ACID, CALCIUM, MINERALS NOS, RETINOL, TOCOPHERYL ACETATE, VITAMIN B NOS, VITAMIN NOS, ZINC) [Concomitant]
  8. FINACEA (AZELAIC ACID) [Concomitant]
  9. GLUCOZSAMINE W/CHONDROITIN (CHONDROITIN SULFATE, GLUCOSAMINE) [Concomitant]
  10. LASIX (FUROSEMIDE) [Concomitant]
  11. METROGEL (METRONIDAZOLE) [Concomitant]
  12. PAXIL (PAROXETINE HYDROCHLORIDE) [Concomitant]
  13. PRAVASTATIN (PRAVASTATIN) [Concomitant]
  14. SELENIUM (SELENIUM) [Concomitant]
  15. SUPER CRANBERRY [Concomitant]
  16. TAMSULOSIN (TAMSULOSIN) [Concomitant]
  17. VITAMIN D (ERGOCALCIFEROL) [Concomitant]

REACTIONS (5)
  - Macular oedema [None]
  - Photosensitivity reaction [None]
  - Vision blurred [None]
  - Photophobia [None]
  - Visual acuity reduced [None]
